FAERS Safety Report 8329259-5 (Version None)
Quarter: 2012Q2

REPORT INFORMATION
  Report Type: 
  Country: None (occurrence: None)
  Receive Date: 20120502
  Receipt Date: 20110802
  Transmission Date: 20120825
  Serious: No
  Sender: FDA-Public Use
  Company Number: US-ASTRAZENECA-2011SE46069

PATIENT
  Age: 81 Year
  Sex: Female

DRUGS (3)
  1. FASLODEX [Suspect]
     Indication: BONE NEOPLASM MALIGNANT
     Route: 030
     Dates: start: 20110729
  2. ZOMETA [Concomitant]
  3. CAPRA [Concomitant]

REACTIONS (5)
  - COUGH [None]
  - ORAL PRURITUS [None]
  - PRURITUS [None]
  - BACK PAIN [None]
  - INJECTION SITE PAIN [None]
